FAERS Safety Report 4864312-X (Version None)
Quarter: 2005Q4

REPORT INFORMATION
  Report Type: 
  Country: None (occurrence: None)
  Receive Date: 20051222
  Receipt Date: 20050906
  Transmission Date: 20060501
  Serious: Yes (Hospitalization)
  Sender: FDA-Public Use
  Company Number: GB-MERCK-0509GBR00092

PATIENT
  Age: 58 Year
  Sex: Male
  Weight: 99 kg

DRUGS (6)
  1. VIOXX [Suspect]
     Indication: ARTHRITIS
     Route: 048
     Dates: start: 20000114, end: 20000701
  2. VIOXX [Suspect]
     Route: 065
     Dates: start: 20010801, end: 20030101
  3. VIOXX [Suspect]
     Route: 048
     Dates: start: 20000701, end: 20000701
  4. METHOTREXATE [Concomitant]
     Indication: PSORIASIS
     Route: 065
     Dates: start: 20000101
  5. FOLIC ACID [Concomitant]
     Route: 065
  6. GLUCOSAMINE [Concomitant]
     Route: 065

REACTIONS (16)
  - ANGINA PECTORIS [None]
  - ATRIAL FIBRILLATION [None]
  - BLOOD PRESSURE INCREASED [None]
  - CALCULUS URETERIC [None]
  - CORONARY ARTERY DISEASE [None]
  - DYSURIA [None]
  - FALL [None]
  - LIGAMENT SPRAIN [None]
  - MOUTH ULCERATION [None]
  - MYOCARDIAL INFARCTION [None]
  - MYOCARDIAL ISCHAEMIA [None]
  - PHARYNGOLARYNGEAL PAIN [None]
  - PROTEINURIA [None]
  - RENAL COLIC [None]
  - TENDONITIS [None]
  - UPPER RESPIRATORY TRACT INFECTION [None]
